FAERS Safety Report 25731968 (Version 1)
Quarter: 2025Q3

REPORT INFORMATION
  Report Type: Spontaneous
  Country: US (occurrence: None)
  Receive Date: 20250827
  Receipt Date: 20250827
  Transmission Date: 20251021
  Serious: Yes (Life-Threatening, Other)
  Sender: FDA-CTU
  Company Number: None

PATIENT
  Age: 25 Year
  Sex: Male
  Weight: 69.75 kg

DRUGS (7)
  1. CLONAZEPAM [Suspect]
     Active Substance: CLONAZEPAM
     Indication: Mental disorder
     Route: 048
     Dates: start: 20250826
  2. KLONOPIN [Concomitant]
     Active Substance: CLONAZEPAM
  3. MELATONIN [Concomitant]
     Active Substance: MELATONIN
  4. ABILIFY [Concomitant]
     Active Substance: ARIPIPRAZOLE
  5. OLANZAPINE [Concomitant]
     Active Substance: OLANZAPINE
  6. Benztropin [Concomitant]
  7. LAMICTAL [Concomitant]
     Active Substance: LAMOTRIGINE

REACTIONS (1)
  - Product prescribing error [None]
